FAERS Safety Report 4927303-6 (Version None)
Quarter: 2006Q1

REPORT INFORMATION
  Report Type: 
  Country: None (occurrence: None)
  Receive Date: 20060228
  Receipt Date: 20050620
  Transmission Date: 20060701
  Serious: No
  Sender: FDA-Public Use
  Company Number: US-GLAXOSMITHKLINE-A0563461A

PATIENT
  Age: 35 Year
  Sex: Female

DRUGS (1)
  1. IMITREX [Suspect]
     Dosage: 6MG SINGLE DOSE
     Route: 058
     Dates: start: 20050620, end: 20050620

REACTIONS (2)
  - HEADACHE [None]
  - THROAT TIGHTNESS [None]
